FAERS Safety Report 4284264-3 (Version None)
Quarter: 2004Q1

REPORT INFORMATION
  Report Type: 
  Country: None (occurrence: None)
  Receive Date: 20040202
  Receipt Date: 20040202
  Transmission Date: 20041129
  Serious: Yes (Life-Threatening, Hospitalization)
  Sender: FDA-Public Use
  Company Number: None

PATIENT
  Age: 70 Year
  Sex: Female
  Weight: 102.5 kg

DRUGS (12)
  1. METHOTREXATE [Suspect]
     Indication: CENTRAL NERVOUS SYSTEM LYMPHOMA
     Dosage: 10.2 GRAMS OVER 17 HO INTRAVENOUS
     Route: 042
     Dates: start: 20030925, end: 20030926
  2. ATROVASTATIN [Concomitant]
  3. ESCITALOPRAM OXALATE [Concomitant]
  4. LEVOTHYROXINE SODIUM [Concomitant]
  5. LOSARTEN/HYDROCHLOROTHIAZIDE [Concomitant]
  6. TRIMETHOPRIM-SULFAMETHOXAZOLE [Concomitant]
  7. THIOTEPA [Concomitant]
  8. VINCRISTINE [Concomitant]
  9. RITUXIMAB [Concomitant]
  10. DEXAMETHASONE [Concomitant]
  11. DOLASETRON [Concomitant]
  12. LEUCOVORIN CALCIUM [Concomitant]

REACTIONS (5)
  - DEHYDRATION [None]
  - DRUG TOXICITY [None]
  - NEUTROPENIA [None]
  - RENAL FAILURE ACUTE [None]
  - STOMATITIS [None]
